FAERS Safety Report 25563093 (Version 1)
Quarter: 2025Q3

REPORT INFORMATION
  Report Type: Spontaneous
  Country: CN (occurrence: CN)
  Receive Date: 20250716
  Receipt Date: 20250716
  Transmission Date: 20251021
  Serious: Yes (Hospitalization, Other)
  Sender: BAXTER
  Company Number: None

PATIENT
  Age: 71 Year
  Sex: Male

DRUGS (5)
  1. CYCLOPHOSPHAMIDE [Suspect]
     Active Substance: CYCLOPHOSPHAMIDE
     Indication: Diffuse large B-cell lymphoma
     Dosage: 280 MG, QD
     Route: 041
     Dates: start: 20250616, end: 20250616
  2. RITUXIMAB [Suspect]
     Active Substance: RITUXIMAB
     Indication: Diffuse large B-cell lymphoma
     Dosage: 700 MG, QD
     Route: 041
     Dates: start: 20250615, end: 20250615
  3. DECITABINE [Suspect]
     Active Substance: DECITABINE
     Indication: Diffuse large B-cell lymphoma
     Dosage: 17.2 MG, QD
     Route: 041
     Dates: start: 20250616, end: 20250618
  4. EPIRUBICIN HYDROCHLORIDE [Suspect]
     Active Substance: EPIRUBICIN HYDROCHLORIDE
     Indication: Diffuse large B-cell lymphoma
     Dosage: 120 MG, QD
     Route: 041
     Dates: start: 20250616, end: 20250616
  5. POLATUZUMAB VEDOTIN [Suspect]
     Active Substance: POLATUZUMAB VEDOTIN
     Indication: Diffuse large B-cell lymphoma
     Dosage: 117 MG, QD
     Route: 041
     Dates: start: 20250616, end: 20250616

REACTIONS (8)
  - Hyperpyrexia [Recovering/Resolving]
  - Pyrexia [Recovering/Resolving]
  - Myelosuppression [Recovering/Resolving]
  - Perineal erythema [Recovering/Resolving]
  - Perineal swelling [Recovering/Resolving]
  - Perineal pain [Unknown]
  - Temperature intolerance [Unknown]
  - Chills [Unknown]

NARRATIVE: CASE EVENT DATE: 20250630
